FAERS Safety Report 7423965-2 (Version None)
Quarter: 2011Q2

REPORT INFORMATION
  Report Type: 
  Country: None (occurrence: None)
  Receive Date: 20110419
  Receipt Date: 20110412
  Transmission Date: 20111010
  Serious: No
  Sender: FDA-Public Use
  Company Number: B0705925A

PATIENT
  Sex: Female

DRUGS (2)
  1. VALTREX [Suspect]
     Indication: HERPES SIMPLEX
     Dosage: 500MG PER DAY
     Route: 048
     Dates: start: 20110221
  2. ZOVIRAX [Concomitant]
     Route: 061

REACTIONS (4)
  - DISCOMFORT [None]
  - PYREXIA [None]
  - EYELID OEDEMA [None]
  - PALPITATIONS [None]
